FAERS Safety Report 20567155 (Version 7)
Quarter: 2025Q2

REPORT INFORMATION
  Report Type: Spontaneous
  Country: US (occurrence: US)
  Receive Date: 20220308
  Receipt Date: 20250624
  Transmission Date: 20250717
  Serious: No
  Sender: PFIZER
  Company Number: US-PFIZER INC-2021894327

PATIENT
  Age: 76 Year
  Sex: Female
  Weight: 62.1 kg

DRUGS (1)
  1. XELJANZ XR [Suspect]
     Active Substance: TOFACITINIB CITRATE
     Dosage: 11 MG, DAILY

REACTIONS (4)
  - Pain [Unknown]
  - Hypersensitivity [Unknown]
  - Intentional product misuse [Unknown]
  - Product dose omission issue [Unknown]
